FAERS Safety Report 20237913 (Version 1)
Quarter: 2021Q4

REPORT INFORMATION
  Report Type: Spontaneous
  Country: US (occurrence: None)
  Receive Date: 20211227
  Receipt Date: 20211227
  Transmission Date: 20220303
  Serious: No
  Sender: FDA-Public Use
  Company Number: None

PATIENT
  Age: 72 Year
  Sex: Female
  Weight: 67 kg

DRUGS (1)
  1. HALOPERIDOL [Suspect]
     Active Substance: HALOPERIDOL
     Indication: Agitation
     Dosage: FREQUENCY : ONCE;?
     Route: 042
     Dates: start: 20211219, end: 20211219

REACTIONS (3)
  - Hypersensitivity [None]
  - Unresponsive to stimuli [None]
  - Contraindicated product administered [None]

NARRATIVE: CASE EVENT DATE: 20211220
